FAERS Safety Report 13256314 (Version 1)
Quarter: 2017Q1

REPORT INFORMATION
  Report Type: Spontaneous
  Country: US (occurrence: US)
  Receive Date: 20170221
  Receipt Date: 20170221
  Transmission Date: 20170428
  Serious: Yes (Hospitalization)
  Sender: FDA-Public Use
  Company Number: None

PATIENT

DRUGS (4)
  1. LEVOFLOXACIN. [Suspect]
     Active Substance: LEVOFLOXACIN
  2. PANTOPRAZOLE [Suspect]
     Active Substance: PANTOPRAZOLE SODIUM
  3. METHYLPREDNISOLONE. [Suspect]
     Active Substance: METHYLPREDNISOLONE
  4. FLUCONAZOLE. [Suspect]
     Active Substance: FLUCONAZOLE

REACTIONS (1)
  - Generalised tonic-clonic seizure [None]

NARRATIVE: CASE EVENT DATE: 20150526
